FAERS Safety Report 6068326-6 (Version None)
Quarter: 2009Q1

REPORT INFORMATION
  Report Type: 
  Country: None (occurrence: None)
  Receive Date: 20090203
  Receipt Date: 20090122
  Transmission Date: 20090719
  Serious: Yes (Death, Hospitalization)
  Sender: FDA-Public Use
  Company Number: 1-17368469

PATIENT
  Age: 76 Year
  Sex: Female

DRUGS (7)
  1. WARFARIN SODIUM [Suspect]
     Dosage: 5 MG DAILY, ORAL
     Route: 048
  2. ENOXAPARIN SODIUM [Suspect]
     Dosage: 6000 IU TWICE DAILY, SUBCUTANEOUS
     Route: 058
  3. FUROSEMIDE [Concomitant]
  4. AN UNSPECIFIED ANGIOTENSIN-CONVERTING ENZYME INHIBITOR [Concomitant]
  5. ORAL DILTIAZEM [Concomitant]
  6. AN UNSPECIFIED INTRAVENOUS DIURETIC [Concomitant]
  7. NITROGLYCERIN [Concomitant]

REACTIONS (8)
  - ABDOMINAL DISTENSION [None]
  - DYSPNOEA [None]
  - INCORRECT ROUTE OF DRUG ADMINISTRATION [None]
  - INTERNATIONAL NORMALISED RATIO INCREASED [None]
  - INTRA-ABDOMINAL HAEMATOMA [None]
  - METABOLIC ACIDOSIS [None]
  - PERITONEAL HAEMORRHAGE [None]
  - RENAL FAILURE ACUTE [None]
